FAERS Safety Report 7242604-7 (Version None)
Quarter: 2011Q1

REPORT INFORMATION
  Report Type: 
  Country: None (occurrence: None)
  Receive Date: 20110125
  Receipt Date: 20110118
  Transmission Date: 20110831
  Serious: Yes (Other)
  Sender: FDA-Public Use
  Company Number: US-JNJFOC-20101200708

PATIENT
  Sex: Female
  Weight: 38.56 kg

DRUGS (3)
  1. ULTRAM [Suspect]
     Indication: MYALGIA
     Dosage: 1 DAY AS NEEDED.
     Route: 048
  2. ULTRAM ER [Suspect]
     Indication: MYALGIA
     Dosage: EXTENDED RELEASE.  1 A DAY
  3. THYROID THERAPY [Concomitant]
     Indication: THYROID DISORDER
     Route: 048

REACTIONS (6)
  - MUSCLE DISORDER [None]
  - SWELLING FACE [None]
  - MOBILITY DECREASED [None]
  - NAUSEA [None]
  - INTENTIONAL DRUG MISUSE [None]
  - MUSCULOSKELETAL STIFFNESS [None]
